FAERS Safety Report 23859379 (Version 8)
Quarter: 2024Q3

REPORT INFORMATION
  Report Type: Spontaneous
  Country: US (occurrence: US)
  Receive Date: 20240515
  Receipt Date: 20240724
  Transmission Date: 20241017
  Serious: No
  Sender: BIOGEN
  Company Number: US-BIOGEN-2023BI01219216

PATIENT
  Age: 70 Year
  Sex: Male

DRUGS (18)
  1. VUMERITY [Suspect]
     Active Substance: DIROXIMEL FUMARATE
     Indication: Multiple sclerosis
     Dosage: TAKE 2 CAPSULES (462MG) BY MOUTH TWICE DAILY?DISCONTINUED VUMERITY BACK IN SEPTEMBER OR OCTOBER 2023
     Route: 050
     Dates: start: 20230306, end: 20230901
  2. VUMERITY [Suspect]
     Active Substance: DIROXIMEL FUMARATE
     Dosage: TAKE 1 CAPSULE (231MG) BY MOUTH TWICE DAILY FOR THE FIRST 7 DAYS, THEN TAKE 2 CAPSULES (462MG) TW...
     Route: 050
     Dates: end: 202312
  3. VUMERITY [Suspect]
     Active Substance: DIROXIMEL FUMARATE
     Route: 050
     Dates: start: 20240707, end: 20240713
  4. VUMERITY [Suspect]
     Active Substance: DIROXIMEL FUMARATE
     Route: 050
     Dates: start: 20240714
  5. CIALIS [Concomitant]
     Active Substance: TADALAFIL
     Route: 050
  6. FLOMAX [Concomitant]
     Active Substance: TAMSULOSIN HYDROCHLORIDE
     Route: 050
  7. PLAVIX [Concomitant]
     Active Substance: CLOPIDOGREL BISULFATE
     Route: 050
  8. METAMUCIL [Concomitant]
     Active Substance: PLANTAGO SEED
     Route: 050
  9. TACROLIMUS [Concomitant]
     Active Substance: TACROLIMUS
     Route: 050
  10. ASTEPRO [Concomitant]
     Active Substance: AZELASTINE HYDROCHLORIDE
     Route: 050
  11. ELIQUIS [Concomitant]
     Active Substance: APIXABAN
     Route: 050
  12. GABAPENTIN [Concomitant]
     Active Substance: GABAPENTIN
     Route: 050
  13. FLONASE [Concomitant]
     Active Substance: FLUTICASONE PROPIONATE
     Route: 050
  14. ADVAIR HFA [Concomitant]
     Active Substance: FLUTICASONE PROPIONATE\SALMETEROL XINAFOATE
     Route: 050
  15. FINASTERIDE [Concomitant]
     Active Substance: FINASTERIDE
     Route: 050
  16. TAMSULOSIN HYDROCHLORIDE [Concomitant]
     Active Substance: TAMSULOSIN HYDROCHLORIDE
     Route: 050
  17. CIPROFLOXACIN HYDROCHLORIDE [Concomitant]
     Active Substance: CIPROFLOXACIN HYDROCHLORIDE
     Route: 050
  18. CLOBETASOL PROPIONATE [Concomitant]
     Active Substance: CLOBETASOL PROPIONATE
     Dosage: 0.05% 60GM
     Route: 050

REACTIONS (9)
  - Asthma [Unknown]
  - Blood cholesterol increased [Unknown]
  - Prostatomegaly [Unknown]
  - Urethral obstruction [Unknown]
  - Blood triglycerides abnormal [Unknown]
  - Multiple allergies [Unknown]
  - Multiple sclerosis [Unknown]
  - Anaemia [Unknown]
  - White blood cell count decreased [Recovered/Resolved]

NARRATIVE: CASE EVENT DATE: 20230425
